FAERS Safety Report 4425052-4 (Version None)
Quarter: 2004Q3

REPORT INFORMATION
  Report Type: 
  Country: None (occurrence: None)
  Receive Date: 20040813
  Receipt Date: 20040803
  Transmission Date: 20050211
  Serious: Yes (Hospitalization, Disabling)
  Sender: FDA-Public Use
  Company Number: PHHO2004JP10992

PATIENT
  Age: 81 Year
  Sex: Female

DRUGS (3)
  1. DIOVAN [Suspect]
     Indication: HYPERTENSION
     Dosage: 40 MG, QD
     Route: 048
     Dates: start: 20030528, end: 20030702
  2. DIOVAN [Suspect]
     Dosage: 80 MG, QD
     Route: 048
     Dates: start: 20030703, end: 20030718
  3. SYMMETREL [Suspect]
     Indication: CEREBRAL INFARCTION
     Dosage: 150 MG/DAY
     Route: 048
     Dates: start: 20011217, end: 20030718

REACTIONS (5)
  - CEREBRAL INFARCTION [None]
  - DEPRESSED LEVEL OF CONSCIOUSNESS [None]
  - HEMIPARESIS [None]
  - REHABILITATION THERAPY [None]
  - VISUAL FIELD DEFECT [None]
